FAERS Safety Report 15496495 (Version 2)
Quarter: 2019Q1

REPORT INFORMATION
  Report Type: Report from Study
  Country: None (occurrence: BR)
  Receive Date: 20181012
  Receipt Date: 20190123
  Transmission Date: 20190417
  Serious: Yes (Other)
  Sender: FDA-Public Use
  Company Number: BR-ABBVIE-18K-020-2515425-00

PATIENT
  Sex: Female
  Weight: 85 kg

DRUGS (1)
  1. HUMIRA [Suspect]
     Active Substance: ADALIMUMAB
     Indication: RHEUMATOID ARTHRITIS
     Route: 058
     Dates: start: 20160901, end: 201810

REACTIONS (4)
  - Knee deformity [Not Recovered/Not Resolved]
  - Gait disturbance [Unknown]
  - Joint range of motion decreased [Unknown]
  - Cartilage atrophy [Not Recovered/Not Resolved]

NARRATIVE: CASE EVENT DATE: 2016
